FAERS Safety Report 4981699-8 (Version None)
Quarter: 2006Q2

REPORT INFORMATION
  Report Type: 
  Country: None (occurrence: None)
  Receive Date: 20060421
  Receipt Date: 20060412
  Transmission Date: 20061013
  Serious: Yes (Other)
  Sender: FDA-Public Use
  Company Number: 2006051369

PATIENT
  Sex: Female

DRUGS (2)
  1. PROCARDIA [Suspect]
     Indication: HYPERTENSION
  2. NIFEDIPINE [Suspect]
     Indication: HYPERTENSION

REACTIONS (6)
  - BALANCE DISORDER [None]
  - CONDITION AGGRAVATED [None]
  - DIZZINESS [None]
  - JOINT SWELLING [None]
  - MUSCLE SPASMS [None]
  - PHARMACEUTICAL PRODUCT COMPLAINT [None]
